FAERS Safety Report 8535894-1 (Version None)
Quarter: 2012Q3

REPORT INFORMATION
  Report Type: 
  Country: None (occurrence: None)
  Receive Date: 20120725
  Receipt Date: 20120718
  Transmission Date: 20120928
  Serious: Yes (Hospitalization)
  Sender: FDA-Public Use
  Company Number: PHEH2012US014184

PATIENT
  Sex: Male

DRUGS (2)
  1. PROGRAF [Concomitant]
     Dosage: UNK UKN, UNK
  2. MYFORTIC [Suspect]
     Indication: LIVER TRANSPLANT
     Dosage: 360 MG, BID
     Route: 048
     Dates: start: 20120709

REACTIONS (1)
  - ENZYME LEVEL INCREASED [None]
